FAERS Safety Report 9611596 (Version 4)
Quarter: 2015Q2

REPORT INFORMATION
  Report Type: Spontaneous
  Country: JP (occurrence: JP)
  Receive Date: 20131010
  Receipt Date: 20150519
  Transmission Date: 20150821
  Serious: Yes (Hospitalization, Other)
  Sender: FDA-Public Use
  Company Number: JP-ROCHE-1284019

PATIENT
  Age: 63 Year
  Sex: Female
  Weight: 48 kg

DRUGS (7)
  1. SALAZOSULFAPYRIDINE [Concomitant]
     Active Substance: SULFASALAZINE
     Indication: RHEUMATOID ARTHRITIS
     Route: 048
     Dates: start: 200901, end: 200906
  2. CELECOX [Concomitant]
     Active Substance: CELECOXIB
     Indication: RHEUMATOID ARTHRITIS
     Route: 048
     Dates: start: 200901
  3. METHOTREXATE [Concomitant]
     Active Substance: METHOTREXATE
     Indication: RHEUMATOID ARTHRITIS
     Route: 048
     Dates: start: 200901
  4. PREDNISOLONE. [Concomitant]
     Active Substance: PREDNISOLONE
     Indication: RHEUMATOID ARTHRITIS
     Route: 065
     Dates: start: 200901, end: 20090930
  5. RESTAMIN [Concomitant]
     Active Substance: DIPHENHYDRAMINE
     Indication: PROPHYLAXIS
     Route: 048
     Dates: start: 200906, end: 20130918
  6. FOLIAMIN [Concomitant]
     Active Substance: FOLIC ACID
     Indication: PROPHYLAXIS
     Route: 048
     Dates: start: 200901
  7. ACTEMRA [Suspect]
     Active Substance: TOCILIZUMAB
     Indication: RHEUMATOID ARTHRITIS
     Dosage: DOSAGE IS UNCERTAIN.
     Route: 041
     Dates: start: 20090605, end: 20130918

REACTIONS (5)
  - Pneumonia bacterial [Recovered/Resolved]
  - Administration related reaction [Recovering/Resolving]
  - Malaise [Recovered/Resolved]
  - Cardiac neoplasm unspecified [Unknown]
  - Cerebral infarction [Recovering/Resolving]

NARRATIVE: CASE EVENT DATE: 201302
